FAERS Safety Report 8093155-1 (Version None)
Quarter: 2012Q1

REPORT INFORMATION
  Report Type: 
  Country: None (occurrence: None)
  Receive Date: 20120128
  Receipt Date: 20111012
  Transmission Date: 20120608
  Serious: No
  Sender: FDA-Public Use
  Company Number: US-ABBOTT-11P-163-0846186-00

PATIENT
  Age: 59 Year
  Sex: Male

DRUGS (5)
  1. PRAVASTATIN [Concomitant]
     Indication: BLOOD PRESSURE
     Route: 048
  2. ASPIRIN [Concomitant]
     Indication: CARDIOVASCULAR EVENT PROPHYLAXIS
     Route: 048
  3. BENICAR [Concomitant]
     Indication: BLOOD PRESSURE
     Route: 048
  4. COREG [Concomitant]
     Indication: BLOOD PRESSURE
     Route: 048
  5. HUMIRA [Suspect]
     Indication: PSORIASIS
     Dates: start: 20090801

REACTIONS (11)
  - SINUSITIS [None]
  - TOOTHACHE [None]
  - INJECTION SITE NODULE [None]
  - BLOOD GLUCOSE INCREASED [None]
  - INJECTION SITE HAEMATOMA [None]
  - RHINORRHOEA [None]
  - INJECTION SITE HAEMORRHAGE [None]
  - SKIN IRRITATION [None]
  - HEADACHE [None]
  - INJECTION SITE PAIN [None]
  - NASAL DISCOMFORT [None]
